FAERS Safety Report 10906619 (Version 2)
Quarter: 2015Q3

REPORT INFORMATION
  Report Type: Spontaneous
  Country: US (occurrence: US)
  Receive Date: 20150312
  Receipt Date: 20150707
  Transmission Date: 20151125
  Serious: No
  Sender: FDA-Public Use
  Company Number: US-009507513-1503USA003820

PATIENT
  Sex: Female

DRUGS (7)
  1. BELSOMRA [Suspect]
     Active Substance: SUVOREXANT
     Dosage: 10 MG, HS
     Route: 048
  2. BELSOMRA [Suspect]
     Active Substance: SUVOREXANT
     Dosage: 20 MG, HS
     Route: 048
  3. BENADRYL [Suspect]
     Active Substance: DIPHENHYDRAMINE HYDROCHLORIDE
     Dosage: 25 MG 2 TABS, EVERY NIGHT
     Route: 048
  4. KLONOPIN [Suspect]
     Active Substance: CLONAZEPAM
     Dosage: 1 MG EVERY NIGHT
  5. BELSOMRA [Suspect]
     Active Substance: SUVOREXANT
     Dosage: 20 MG, HS
     Route: 048
  6. BACLOFEN. [Suspect]
     Active Substance: BACLOFEN
     Dosage: 10 MG 3 TABS, HS
     Route: 048
  7. BENADRYL [Suspect]
     Active Substance: DIPHENHYDRAMINE HYDROCHLORIDE
     Dosage: 25 MG, 1 TABLET
     Route: 048

REACTIONS (3)
  - Insomnia [Not Recovered/Not Resolved]
  - Musculoskeletal pain [Not Recovered/Not Resolved]
  - Drug ineffective [Not Recovered/Not Resolved]
